FAERS Safety Report 23184286 (Version 1)
Quarter: 2023Q4

REPORT INFORMATION
  Report Type: Spontaneous
  Country: US (occurrence: US)
  Receive Date: 20231115
  Receipt Date: 20231115
  Transmission Date: 20240109
  Serious: Yes (Other)
  Sender: FDA-Public Use
  Company Number: US-SA-SAC20231114000192

PATIENT
  Age: 69 Year
  Sex: Female

DRUGS (13)
  1. DUPIXENT [Suspect]
     Active Substance: DUPILUMAB
     Indication: Nasal polyps
     Dosage: 300 MG, QOW
     Route: 058
  2. TRELEGY ELLIPTA [Concomitant]
     Active Substance: FLUTICASONE FUROATE\UMECLIDINIUM BROMIDE\VILANTEROL TRIFENATATE
  3. ALBUTEROL [Concomitant]
     Active Substance: ALBUTEROL
  4. ASPIRIN [Concomitant]
     Active Substance: ASPIRIN
  5. ATORVASTATIN [Concomitant]
     Active Substance: ATORVASTATIN
  6. BENADRYL ALLERGY [Concomitant]
     Active Substance: DIPHENHYDRAMINE HYDROCHLORIDE
  7. BUDESONIDE [Concomitant]
     Active Substance: BUDESONIDE
  8. CLONAZEPAM [Concomitant]
     Active Substance: CLONAZEPAM
  9. CYMBALTA [Concomitant]
     Active Substance: DULOXETINE HYDROCHLORIDE
  10. DOXYCYCLINE [Concomitant]
     Active Substance: DOXYCYCLINE
  11. ESTRADIOL [Concomitant]
     Active Substance: ESTRADIOL
  12. FINASTERIDE [Concomitant]
     Active Substance: FINASTERIDE
  13. SINGULAIR [Concomitant]
     Active Substance: MONTELUKAST SODIUM

REACTIONS (1)
  - Pneumonia [Not Recovered/Not Resolved]
